FAERS Safety Report 4963979-5 (Version None)
Quarter: 2006Q1

REPORT INFORMATION
  Report Type: 
  Country: None (occurrence: None)
  Receive Date: 20060201
  Receipt Date: 20051103
  Transmission Date: 20060701
  Serious: No
  Sender: FDA-Public Use
  Company Number: 2005PV004545

PATIENT
  Age: 65 Year
  Sex: Female
  Weight: 110.2241 kg

DRUGS (3)
  1. BYETTA [Suspect]
     Indication: DIABETES MELLITUS NON-INSULIN-DEPENDENT
     Dosage: 5 MCG; BID; SC
     Route: 058
     Dates: start: 20051018
  2. GLYBURIDE AND METFORMIN HCL [Concomitant]
  3. ACTOS [Concomitant]

REACTIONS (4)
  - ERUCTATION [None]
  - FLATULENCE [None]
  - NAUSEA [None]
  - WEIGHT DECREASED [None]
